FAERS Safety Report 8209128-1 (Version None)
Quarter: 2012Q1

REPORT INFORMATION
  Report Type: 
  Country: None (occurrence: None)
  Receive Date: 20120314
  Receipt Date: 20101117
  Transmission Date: 20120608
  Serious: Yes (Death)
  Sender: FDA-Public Use
  Company Number: JP-BAYER-201015655BYL

PATIENT
  Age: 80 Year
  Sex: Female
  Weight: 46 kg

DRUGS (19)
  1. LIVACT [Concomitant]
     Indication: HYPOALBUMINAEMIA
     Dosage: 12.45 G (DAILY DOSE), , ORAL
     Route: 048
     Dates: start: 20100316, end: 20101103
  2. PURSENNID [Concomitant]
     Indication: CONSTIPATION
     Dosage: 24 MG (DAILY DOSE), , ORAL
     Route: 048
  3. CANDESARTAN CILEXETIL [Concomitant]
     Indication: HYPERTENSION
     Dosage: 8 MG (DAILY DOSE), , ORAL
     Route: 048
     Dates: start: 20081110, end: 20101103
  4. LASIX [Concomitant]
     Indication: HYPERTENSION
     Dosage: 20 MG (DAILY DOSE), , ORAL
     Route: 048
     Dates: start: 20100326, end: 20101103
  5. RABEPRAZOLE SODIUM [Concomitant]
     Indication: GASTRIC ULCER
     Dosage: 20 MG (DAILY DOSE), , ORAL
     Route: 048
     Dates: start: 20081017, end: 20101103
  6. MARZULENE [Concomitant]
     Indication: GASTRITIS
     Dosage: 1 MG (DAILY DOSE), , ORAL
     Route: 048
     Dates: start: 20100110, end: 20101103
  7. CELECOXIB [Concomitant]
     Indication: BACK PAIN
     Dosage: 400 MG (DAILY DOSE), , ORAL
     Route: 048
     Dates: start: 20100308, end: 20101103
  8. LOXONIN [Concomitant]
     Dosage: 100 MG (DAILY DOSE), , TRANSDERMAL
     Route: 062
     Dates: start: 20100403, end: 20101103
  9. ALDACTONE [Concomitant]
     Indication: OEDEMA PERIPHERAL
     Dosage: 25 MG (DAILY DOSE), , ORAL
     Route: 048
     Dates: start: 20100326, end: 20101103
  10. EBRANTIL [Concomitant]
     Indication: HYPERTENSION
     Dosage: 30 MG (DAILY DOSE), , ORAL
     Route: 048
     Dates: start: 20100802, end: 20101103
  11. NEXAVAR [Suspect]
     Indication: HEPATIC NEOPLASM MALIGNANT
     Route: 048
     Dates: start: 20101028, end: 20101102
  12. ALFAROL [Concomitant]
     Indication: OSTEOPOROSIS
     Dosage: 0.5 ?G (DAILY DOSE), , ORAL
     Route: 048
     Dates: start: 20100308, end: 20101103
  13. GANATON [Concomitant]
     Indication: GASTRITIS
     Dosage: 150 MG (DAILY DOSE), , ORAL
     Route: 048
     Dates: start: 20081110, end: 20101103
  14. MAGMITT [Concomitant]
     Indication: CONSTIPATION
     Dosage: 1980 MG (DAILY DOSE), , ORAL
     Route: 048
     Dates: start: 20080825, end: 20101103
  15. LOXONIN [Concomitant]
     Indication: BACK PAIN
     Route: 048
     Dates: start: 20081101
  16. FERROUS CITRATE [Concomitant]
     Indication: ANAEMIA
     Dosage: 100 MG (DAILY DOSE), , ORAL
     Route: 048
     Dates: start: 20100820, end: 20101103
  17. NEXAVAR [Suspect]
     Route: 048
     Dates: start: 20101103, end: 20101103
  18. ALENDRONATE SODIUM [Concomitant]
     Indication: OSTEOPOROSIS
     Dosage: 35 MG (DAILY DOSE), , ORAL
     Route: 048
     Dates: start: 20100308, end: 20101103
  19. ESTAZOLAM [Concomitant]
     Indication: INSOMNIA
     Dosage: 3 MG (DAILY DOSE), , ORAL
     Route: 048
     Dates: start: 20080929, end: 20101103

REACTIONS (2)
  - RENAL FAILURE ACUTE [None]
  - PLATELET COUNT DECREASED [None]
